FAERS Safety Report 5024021-3 (Version None)
Quarter: 2006Q2

REPORT INFORMATION
  Report Type: 
  Country: None (occurrence: None)
  Receive Date: 20060607
  Receipt Date: 20060526
  Transmission Date: 20061013
  Serious: Yes (Hospitalization)
  Sender: FDA-Public Use
  Company Number: HQWYE166504MAY06

PATIENT
  Age: 51 Year
  Sex: Female
  Weight: 53 kg

DRUGS (14)
  1. RAPAMUNE [Suspect]
     Indication: RENAL AND PANCREAS TRANSPLANT
     Dosage: 4 MG 1X ER 1 DAY, ORAL
     Route: 048
  2. PROGRAF [Concomitant]
  3. ASPIRIN [Concomitant]
  4. LOPRESSOR [Concomitant]
  5. PREDNISONE TAB [Concomitant]
  6. NEXIUM [Concomitant]
  7. ZELNORM [Concomitant]
  8. DEMADEX [Concomitant]
  9. BACTRIM DS [Concomitant]
  10. VALGANCICLOVIR HCL [Concomitant]
  11. HYDRALAZINE HCL [Concomitant]
  12. IMDUR [Concomitant]
  13. PRAVACHOL [Concomitant]
  14. EPOGEN [Concomitant]

REACTIONS (1)
  - COLITIS [None]
